FAERS Safety Report 23867996 (Version 3)
Quarter: 2024Q3

REPORT INFORMATION
  Report Type: Report from Study
  Country: US (occurrence: US)
  Receive Date: 20240517
  Receipt Date: 20240821
  Transmission Date: 20241016
  Serious: No
  Sender: DR REDDYS
  Company Number: US-drreddys-SPO/USA/23/0175288

PATIENT
  Age: 6 Year
  Sex: Female
  Weight: 29.21 kg

DRUGS (2)
  1. SAPROPTERIN DIHYDROCHLORIDE [Suspect]
     Active Substance: SAPROPTERIN DIHYDROCHLORIDE
     Indication: Hyperphenylalaninaemia
     Dosage: ONE TIME EACH DAY
     Route: 048
  2. SAPROPTERIN DIHYDROCHLORIDE [Suspect]
     Active Substance: SAPROPTERIN DIHYDROCHLORIDE
     Indication: Phenylketonuria
     Dosage: EACH DAY
     Route: 048

REACTIONS (7)
  - Appetite disorder [Unknown]
  - Eye swelling [Unknown]
  - Rhinorrhoea [Unknown]
  - Ear pruritus [Unknown]
  - Product dose omission issue [Unknown]
  - Hyperphagia [Unknown]
  - Diet noncompliance [Unknown]
